FAERS Safety Report 9708709 (Version 1)
Quarter: 2013Q4

REPORT INFORMATION
  Report Type: Spontaneous
  Country: US (occurrence: US)
  Receive Date: 20131125
  Receipt Date: 20131125
  Transmission Date: 20140711
  Serious: Yes (Death)
  Sender: FDA-Public Use
  Company Number: US-GLAXOSMITHKLINE-A1050627A

PATIENT
  Age: 74 Year
  Sex: Male

DRUGS (5)
  1. ZOFRAN [Suspect]
     Indication: PROPHYLAXIS OF NAUSEA AND VOMITING
     Dosage: 8MG AS REQUIRED
     Route: 048
     Dates: start: 2006, end: 20131014
  2. ONDANSETRON [Suspect]
     Indication: PROPHYLAXIS OF NAUSEA AND VOMITING
     Dosage: 8MG AS REQUIRED
     Route: 048
     Dates: start: 2006, end: 20131014
  3. CHEMOTHERAPY [Concomitant]
  4. PAIN MEDICATION [Concomitant]
  5. CONCURRENT MEDICATIONS [Concomitant]

REACTIONS (2)
  - Death [Fatal]
  - Therapeutic response decreased [Unknown]
